FAERS Safety Report 21521398 (Version 1)
Quarter: 2022Q4

REPORT INFORMATION
  Report Type: Spontaneous
  Country: FR (occurrence: FR)
  Receive Date: 20221028
  Receipt Date: 20221028
  Transmission Date: 20230113
  Serious: Yes (Other)
  Sender: FDA-Public Use
  Company Number: FR-NOVARTISPH-NVSC2021FR224570

PATIENT
  Sex: Male

DRUGS (4)
  1. ADALIMUMAB [Suspect]
     Active Substance: ADALIMUMAB
     Indication: Chronic granulomatous disease
     Dosage: 24 MILLIGRAM/SQ. METER, Q2W
     Route: 058
  2. AZATHIOPRINE [Suspect]
     Active Substance: AZATHIOPRINE
     Indication: Immunosuppressant drug therapy
     Dosage: UNK
     Route: 065
  3. REMICADE [Suspect]
     Active Substance: INFLIXIMAB
     Indication: Chronic granulomatous disease
     Dosage: DOSE OF 5 OR 10 MG/KG/INFUSION, USUALLY AT 0,2,AND 6 WEEKS, THEN EVERY 4 TO 8 WEEKS
     Route: 042
  4. COTRIMOXAZOLE [Concomitant]
     Active Substance: SULFAMETHOXAZOLE\TRIMETHOPRIM
     Indication: Infection prophylaxis
     Dosage: UNK
     Route: 065

REACTIONS (2)
  - Pulmonary mucormycosis [Unknown]
  - Product use in unapproved indication [Unknown]
